FAERS Safety Report 5422622-1 (Version None)
Quarter: 2007Q3

REPORT INFORMATION
  Report Type: 
  Country: None (occurrence: None)
  Receive Date: 20070730
  Receipt Date: 20060918
  Transmission Date: 20080115
  Serious: Yes (Life-Threatening, Hospitalization)
  Sender: FDA-Public Use
  Company Number: 200615016BWH

PATIENT
  Age: 38 Year
  Sex: Female

DRUGS (1)
  1. AVELOX [Suspect]
     Indication: URINARY TRACT INFECTION

REACTIONS (4)
  - ANAPHYLACTIC REACTION [None]
  - DYSPNOEA [None]
  - URTICARIA [None]
  - VOMITING [None]
